FAERS Safety Report 13391113 (Version 3)
Quarter: 2017Q2

REPORT INFORMATION
  Report Type: Spontaneous
  Country: FR (occurrence: FR)
  Receive Date: 20170331
  Receipt Date: 20170505
  Transmission Date: 20170830
  Serious: Yes (Other)
  Sender: FDA-Public Use
  Company Number: FR-RARE DISEASE THERAPEUTICS, INC.-1064864

PATIENT
  Age: 4 Year
  Sex: Female
  Weight: 17 kg

DRUGS (6)
  1. CYSTADANE [Suspect]
     Active Substance: BETAINE
     Indication: VITAMIN B12 DEFICIENCY
     Route: 048
     Dates: start: 201504
  2. METHIONINE [Concomitant]
     Active Substance: METHIONINE
  3. FOLINIC ACID [Concomitant]
     Active Substance: LEUCOVORIN
  4. CYSTADANE [Suspect]
     Active Substance: BETAINE
     Route: 048
     Dates: start: 201510
  5. CYSTADANE [Suspect]
     Active Substance: BETAINE
     Route: 048
     Dates: start: 20160205
  6. DODECAVIT [Concomitant]
     Active Substance: HYDROXOCOBALAMIN ACETATE

REACTIONS (1)
  - Dry skin [Not Recovered/Not Resolved]

NARRATIVE: CASE EVENT DATE: 201602
